FAERS Safety Report 18830295 (Version 1)
Quarter: 2021Q1

REPORT INFORMATION
  Report Type: Spontaneous
  Country: US (occurrence: US)
  Receive Date: 20210202
  Receipt Date: 20210202
  Transmission Date: 20210419
  Serious: Yes (Other)
  Sender: FDA-Public Use
  Company Number: None

PATIENT
  Age: 50 Year
  Sex: Male
  Weight: 116 kg

DRUGS (9)
  1. BAMLANIVIMAB. [Suspect]
     Active Substance: BAMLANIVIMAB
     Indication: COVID-19
     Dosage: ?          OTHER FREQUENCY:ONE TIME;?
     Route: 042
     Dates: start: 20210129
  2. ASPIRIN 81 MG DAILY X1 [Concomitant]
     Dates: start: 20210129, end: 20210129
  3. FEBUXOSTAT 80 MG DAILY [Concomitant]
  4. GABAPENTIN 300 MG TID [Concomitant]
  5. CLOPIDOGREL 300 MG X1 [Concomitant]
     Dates: start: 20210129, end: 20210129
  6. CETIRIZINE 10 MG DAILY [Concomitant]
  7. PRAVASTATIN 20 MG DAILY [Concomitant]
  8. LORAZEPAM 2 MG IV X1 [Concomitant]
     Dates: start: 20210129, end: 20210129
  9. LOSARTAN 50 MG DAILY [Concomitant]

REACTIONS (7)
  - Pyrexia [None]
  - Cough [None]
  - Pulmonary congestion [None]
  - Dyspnoea [None]
  - Speech disorder [None]
  - Gait disturbance [None]
  - Pain [None]

NARRATIVE: CASE EVENT DATE: 20210129
